FAERS Safety Report 7450795-8 (Version None)
Quarter: 2011Q2

REPORT INFORMATION
  Report Type: 
  Country: None (occurrence: None)
  Receive Date: 20110502
  Receipt Date: 20110419
  Transmission Date: 20111010
  Serious: Yes (Hospitalization)
  Sender: FDA-Public Use
  Company Number: JP-AMGEN-JPNCT2011018383

PATIENT
  Age: 69 Year
  Sex: Male
  Weight: 40 kg

DRUGS (11)
  1. LOCOID [Concomitant]
     Route: 062
     Dates: start: 20110225
  2. MYSER [Concomitant]
     Route: 062
     Dates: start: 20110225
  3. ALLEGRA [Concomitant]
     Route: 048
     Dates: start: 20110225, end: 20110310
  4. AMOBAN [Concomitant]
     Route: 048
     Dates: start: 20110222, end: 20110314
  5. ORGADRONE [Concomitant]
     Route: 041
     Dates: start: 20110225
  6. HIRUDOID [Concomitant]
     Route: 062
     Dates: start: 20110225
  7. POLARAMINE [Concomitant]
     Route: 041
     Dates: start: 20110225
  8. PANITUMUMAB [Suspect]
     Indication: COLORECTAL CANCER
     Dosage: 200 MG, Q2WK
     Route: 041
     Dates: start: 20110225
  9. AZUNOL GARGLE LIQUID 4% [Concomitant]
     Route: 050
     Dates: start: 20110225
  10. RINDERON-VG [Concomitant]
     Route: 062
     Dates: start: 20110225
  11. MINOMYCIN [Concomitant]
     Route: 048
     Dates: start: 20110225, end: 20110310

REACTIONS (5)
  - PARONYCHIA [None]
  - MALAISE [None]
  - STOMATITIS [None]
  - PARAESTHESIA ORAL [None]
  - DECREASED APPETITE [None]
